FAERS Safety Report 8269488-2 (Version None)
Quarter: 2012Q2

REPORT INFORMATION
  Report Type: 
  Country: None (occurrence: None)
  Receive Date: 20120409
  Receipt Date: 20120320
  Transmission Date: 20120825
  Serious: Yes (Other)
  Sender: FDA-Public Use
  Company Number: PHFR2012GB001830

PATIENT
  Age: 47 Year
  Sex: Female

DRUGS (2)
  1. TEGRETOL [Suspect]
     Dosage: 400 MG, BID
  2. OLANZAPINE [Suspect]

REACTIONS (6)
  - SLOW SPEECH [None]
  - DEPRESSION [None]
  - ABNORMAL BEHAVIOUR [None]
  - MEMORY IMPAIRMENT [None]
  - SUICIDAL IDEATION [None]
  - INFERTILITY [None]
